FAERS Safety Report 17280040 (Version 1)
Quarter: 2020Q1

REPORT INFORMATION
  Report Type: Report from Study
  Country: PT (occurrence: PT)
  Receive Date: 20200117
  Receipt Date: 20200117
  Transmission Date: 20200409
  Serious: Yes (Hospitalization)
  Sender: FDA-Public Use
  Company Number: PT-BAXTER-2020BAX001187

PATIENT
  Age: 57 Year
  Sex: Female

DRUGS (41)
  1. TAXOL [Suspect]
     Active Substance: PACLITAXEL
     Indication: HER-2 POSITIVE BREAST CANCER
     Route: 042
     Dates: start: 20170622, end: 20170907
  2. SPIRIVA [Concomitant]
     Active Substance: TIOTROPIUM BROMIDE MONOHYDRATE
     Indication: FURUNCLE
     Route: 065
  3. COSOPT [Concomitant]
     Active Substance: DORZOLAMIDE HYDROCHLORIDE\TIMOLOL MALEATE
     Indication: FURUNCLE
     Route: 065
  4. FAKTU [Concomitant]
     Indication: PRODUCT USED FOR UNKNOWN INDICATION
     Route: 065
     Dates: start: 20190125
  5. ATORVASTATIN [Concomitant]
     Active Substance: ATORVASTATIN
     Indication: FURUNCLE
     Route: 065
  6. ETORICOXIB. [Concomitant]
     Active Substance: ETORICOXIB
     Indication: FURUNCLE
     Route: 065
  7. PANTHENOL [Concomitant]
     Active Substance: PANTHENOL
     Indication: FURUNCLE
     Route: 065
     Dates: start: 20180131, end: 20180615
  8. FUCICORT [Concomitant]
     Active Substance: BETAMETHASONE VALERATE\FUSIDIC ACID
     Indication: FURUNCLE
     Route: 065
     Dates: start: 20170629, end: 20170817
  9. CLAVULANIC ACID [Concomitant]
     Active Substance: CLAVULANIC ACID
     Indication: PNEUMONIA
     Route: 065
     Dates: start: 20180215, end: 20180615
  10. ENOXAPARIN [Concomitant]
     Active Substance: ENOXAPARIN
     Indication: PNEUMONIA
     Route: 065
     Dates: start: 20180219
  11. SUGAMMADEX [Concomitant]
     Active Substance: SUGAMMADEX
     Indication: FURUNCLE
     Route: 065
     Dates: start: 20171004, end: 20171004
  12. ADRIAMYCIN [Suspect]
     Active Substance: DOXORUBICIN HYDROCHLORIDE
     Indication: HER-2 POSITIVE BREAST CANCER
     Route: 042
     Dates: start: 20170331, end: 20170601
  13. MOMETASONE [Concomitant]
     Active Substance: MOMETASONE
     Indication: FURUNCLE
     Dosage: ONGOING = NOT CHECKED
     Route: 065
     Dates: start: 20181003, end: 20181010
  14. PIPERACILLIN. [Concomitant]
     Active Substance: PIPERACILLIN SODIUM
     Indication: PNEUMONIA
     Dosage: ONGOING = NOT CHECKED
     Route: 065
     Dates: start: 20180219, end: 20180221
  15. MIDAZOLAM HYDROCHLORIDE. [Concomitant]
     Active Substance: MIDAZOLAM HYDROCHLORIDE
     Indication: FURUNCLE
     Route: 065
     Dates: start: 20171004
  16. TAZOBACTAM [Concomitant]
     Active Substance: TAZOBACTAM
     Indication: PNEUMONIA
     Route: 065
     Dates: start: 20180219, end: 20180221
  17. VASTAREL [Concomitant]
     Active Substance: TRIMETAZIDINE DIHYDROCHLORIDE
     Indication: FURUNCLE
     Dosage: DRUG REPORTED AS VASTAREL LM
     Route: 065
  18. ROCURONIUM [Concomitant]
     Active Substance: ROCURONIUM BROMIDE
     Indication: FURUNCLE
     Route: 065
     Dates: start: 20171004, end: 20171004
  19. DOXIL [Suspect]
     Active Substance: DOXORUBICIN HYDROCHLORIDE
     Indication: HER-2 POSITIVE BREAST CANCER
     Route: 042
     Dates: start: 20170331, end: 20170601
  20. TRAMADOL. [Concomitant]
     Active Substance: TRAMADOL
     Indication: FURUNCLE
     Dosage: ONGOING = NOT CHECKED
     Route: 065
     Dates: start: 20170717, end: 20170721
  21. CALCIUM [Concomitant]
     Active Substance: CALCIUM
     Indication: FURUNCLE
     Route: 065
  22. SEDOXIL [Concomitant]
     Active Substance: MEXAZOLAM
     Indication: FURUNCLE
     Route: 065
     Dates: start: 20190212
  23. PARACETAMOL [Concomitant]
     Active Substance: ACETAMINOPHEN
     Dosage: ONGOING = NOT CHECKED
     Route: 065
     Dates: start: 20171004, end: 20171004
  24. PROPOFOL. [Concomitant]
     Active Substance: PROPOFOL
     Indication: FURUNCLE
     Dosage: ONGOING = NOT CHECKED
     Route: 065
     Dates: start: 20171004, end: 20171004
  25. LACTULOSE. [Concomitant]
     Active Substance: LACTULOSE
     Indication: FURUNCLE
     Dosage: ONGOING = NOT CHECKED
     Route: 065
     Dates: start: 20170601
  26. ATROPINE. [Concomitant]
     Active Substance: ATROPINE
     Indication: FURUNCLE
     Route: 065
     Dates: start: 20171004, end: 20171004
  27. IBUPROFEN. [Concomitant]
     Active Substance: IBUPROFEN
     Indication: FURUNCLE
     Route: 065
     Dates: start: 20180312, end: 20180316
  28. ESOMEPRAZOLE. [Concomitant]
     Active Substance: ESOMEPRAZOLE MAGNESIUM
     Indication: FURUNCLE
     Route: 065
     Dates: start: 20171004, end: 20171004
  29. TRAZODONE [Concomitant]
     Active Substance: TRAZODONE HYDROCHLORIDE
     Indication: FURUNCLE
     Route: 065
     Dates: start: 20190212
  30. ARIMIDEX [Suspect]
     Active Substance: ANASTROZOLE
     Indication: HER-2 POSITIVE BREAST CANCER
     Route: 048
     Dates: start: 20171106
  31. AMOXICILLIN AND CLAVULANATE POTASSIUM [Concomitant]
     Active Substance: AMOXICILLIN\CLAVULANATE POTASSIUM
     Indication: FURUNCLE
     Route: 065
     Dates: start: 20181003, end: 20181015
  32. AZITHROMYCIN ANHYDROUS. [Concomitant]
     Active Substance: AZITHROMYCIN ANHYDROUS
     Indication: PNEUMONIA
     Route: 065
     Dates: start: 20180214, end: 20180216
  33. AMOXICILLIN. [Concomitant]
     Active Substance: AMOXICILLIN
     Indication: PNEUMONIA
     Route: 065
     Dates: start: 20180215, end: 20180615
  34. PARACETAMOL [Concomitant]
     Active Substance: ACETAMINOPHEN
     Indication: FURUNCLE
     Dosage: ONGOING = NOT CHECKED
     Route: 065
     Dates: start: 20170717, end: 20170721
  35. FENTANYL. [Concomitant]
     Active Substance: FENTANYL
     Indication: FURUNCLE
     Route: 065
     Dates: start: 20171004, end: 20171004
  36. DEXAMETHASONE. [Concomitant]
     Active Substance: DEXAMETHASONE
     Indication: FURUNCLE
     Route: 065
     Dates: start: 20170328
  37. ENDOXAN [Suspect]
     Active Substance: CYCLOPHOSPHAMIDE
     Indication: HER-2 POSITIVE BREAST CANCER
     Route: 042
     Dates: start: 20170331, end: 20170601
  38. TRASTUZUMAB RECOMBINANT [Suspect]
     Active Substance: TRASTUZUMAB
     Indication: HER-2 POSITIVE BREAST CANCER
     Route: 058
     Dates: start: 20170622, end: 20180716
  39. LEVOFLOXACIN. [Concomitant]
     Active Substance: LEVOFLOXACIN
     Indication: PNEUMONIA
     Route: 065
     Dates: start: 20180222, end: 20180224
  40. METOCLOPRAMIDA [Concomitant]
     Active Substance: METOCLOPRAMIDE HYDROCHLORIDE
     Indication: FURUNCLE
     Route: 065
     Dates: start: 20170327
  41. ESCITALOPRAM [Concomitant]
     Active Substance: ESCITALOPRAM OXALATE
     Indication: FURUNCLE
     Route: 065
     Dates: start: 20190212

REACTIONS (1)
  - Pneumonia [Recovered/Resolved]

NARRATIVE: CASE EVENT DATE: 20180216
